FAERS Safety Report 7907679-8 (Version None)
Quarter: 2011Q4

REPORT INFORMATION
  Report Type: 
  Country: None (occurrence: None)
  Receive Date: 20111110
  Receipt Date: 20111031
  Transmission Date: 20120403
  Serious: Yes (Other)
  Sender: FDA-Public Use
  Company Number: US-BAYER-2011-032807

PATIENT
  Age: 39 Year
  Sex: Female
  Weight: 111.57 kg

DRUGS (4)
  1. YASMIN [Suspect]
     Indication: CONTRACEPTION
  2. YASMIN [Suspect]
     Indication: BREAST CANCER
  3. YASMIN [Suspect]
     Indication: MENSTRUAL DISCOMFORT
  4. YASMIN [Suspect]
     Indication: ACNE
     Dosage: UNK
     Dates: start: 20050101, end: 20090101

REACTIONS (3)
  - INJURY [None]
  - PAIN [None]
  - CHOLECYSTITIS [None]
